FAERS Safety Report 12525775 (Version 2)
Quarter: 2017Q1

REPORT INFORMATION
  Report Type: Report from Study
  Country: CA (occurrence: CA)
  Receive Date: 20160705
  Receipt Date: 20170310
  Transmission Date: 20170428
  Serious: Yes (Death, Other)
  Sender: FDA-Public Use
  Company Number: CA-UCBSA-2016024956

PATIENT
  Age: 57 Year
  Sex: Female

DRUGS (2)
  1. CERTOLIZUMAB PEGOL RA [Suspect]
     Active Substance: CERTOLIZUMAB PEGOL
     Dosage: 200 MG, EV 2 WEEKS(QOW)
     Route: 058
  2. CERTOLIZUMAB PEGOL RA [Suspect]
     Active Substance: CERTOLIZUMAB PEGOL
     Indication: RHEUMATOID ARTHRITIS
     Dosage: 400 MG, EV 2 WEEKS(QOW)
     Route: 058
     Dates: start: 20111129

REACTIONS (5)
  - Death [Fatal]
  - Brain neoplasm malignant [Unknown]
  - Lung neoplasm malignant [Unknown]
  - Nasopharyngitis [Unknown]
  - Hepatocellular carcinoma [Unknown]

NARRATIVE: CASE EVENT DATE: 201205
